FAERS Safety Report 6507121-8 (Version None)
Quarter: 2009Q4

REPORT INFORMATION
  Report Type: 
  Country: None (occurrence: None)
  Receive Date: 20091221
  Receipt Date: 20091210
  Transmission Date: 20100525
  Serious: Yes (Other)
  Sender: FDA-Public Use
  Company Number: PHHY2009AO54767

PATIENT
  Age: 2 Year
  Sex: Male

DRUGS (2)
  1. COARTEM [Suspect]
     Indication: MALARIA
     Route: 048
  2. PHENOBARBITAL [Concomitant]
     Route: 048

REACTIONS (4)
  - CONJUNCTIVAL HYPERAEMIA [None]
  - RASH PUSTULAR [None]
  - SKIN LESION [None]
  - STEVENS-JOHNSON SYNDROME [None]
